FAERS Safety Report 16448941 (Version 1)
Quarter: 2019Q2

REPORT INFORMATION
  Report Type: Spontaneous
  Country: CA (occurrence: CA)
  Receive Date: 20190619
  Receipt Date: 20190619
  Transmission Date: 20190711
  Serious: Yes (Other)
  Sender: FDA-Public Use
  Company Number: CA-AUROBINDO-AUR-APL-2019-034633

PATIENT

DRUGS (4)
  1. SOMATOSTATIN [Concomitant]
     Active Substance: SOMATOSTATIN
     Indication: PRODUCT USED FOR UNKNOWN INDICATION
     Dosage: UNK
     Route: 065
  2. TELMISARTAN TABLETS [Suspect]
     Active Substance: TELMISARTAN
     Indication: PRODUCT USED FOR UNKNOWN INDICATION
     Dosage: 80 MILLIGRAM
     Route: 048
  3. SANDOSTATIN [Suspect]
     Active Substance: OCTREOTIDE ACETATE
     Indication: CARCINOID SYNDROME
     Dosage: 30 MILLIGRAM, 1 EVERY 4 WEEKS
     Route: 030
  4. MORPHINE [Suspect]
     Active Substance: MORPHINE
     Indication: PRODUCT USED FOR UNKNOWN INDICATION
     Dosage: UNK
     Route: 065

REACTIONS (32)
  - Buttock injury [Recovering/Resolving]
  - Dyspnoea [Recovering/Resolving]
  - Injection site cyst [Recovering/Resolving]
  - Pyrexia [Recovering/Resolving]
  - Administration site abscess [Recovering/Resolving]
  - Feeling hot [Recovering/Resolving]
  - Hot flush [Recovering/Resolving]
  - Influenza [Recovering/Resolving]
  - Blood pressure increased [Recovering/Resolving]
  - Carcinoid tumour [Recovering/Resolving]
  - Pain [Recovering/Resolving]
  - Tumour marker increased [Recovering/Resolving]
  - Administration site induration [Recovering/Resolving]
  - Injection site infection [Recovering/Resolving]
  - Injection site paraesthesia [Recovering/Resolving]
  - Nausea [Recovering/Resolving]
  - Weight decreased [Recovering/Resolving]
  - Malignant neoplasm progression [Recovering/Resolving]
  - Administration site discharge [Recovering/Resolving]
  - Cough [Recovering/Resolving]
  - Fatigue [Recovering/Resolving]
  - Productive cough [Recovering/Resolving]
  - Administration site odour [Recovering/Resolving]
  - Breast cyst [Recovering/Resolving]
  - Dizziness [Recovering/Resolving]
  - Hidradenitis [Recovering/Resolving]
  - Weight increased [Recovering/Resolving]
  - Administration site haemorrhage [Recovering/Resolving]
  - Anxiety [Recovering/Resolving]
  - Injection site pain [Recovering/Resolving]
  - Nasopharyngitis [Recovering/Resolving]
  - Wound [Recovering/Resolving]
